FAERS Safety Report 5950502-1 (Version None)
Quarter: 2008Q4

REPORT INFORMATION
  Report Type: 
  Country: None (occurrence: None)
  Receive Date: 20081112
  Receipt Date: 20081105
  Transmission Date: 20090506
  Serious: Yes (Other)
  Sender: FDA-Public Use
  Company Number: GB-TEVA-180179ISR

PATIENT
  Age: 36 Year
  Sex: Female
  Weight: 80 kg

DRUGS (3)
  1. RISPERIDONE [Suspect]
     Indication: PSYCHOTIC DISORDER
     Route: 048
     Dates: start: 20070101
  2. RISPERIDONE [Suspect]
     Route: 030
     Dates: start: 20070101
  3. RIFINAH [Suspect]
     Indication: LATENT TUBERCULOSIS
     Route: 048
     Dates: start: 20080821, end: 20080918

REACTIONS (1)
  - PSYCHOTIC DISORDER [None]
